FAERS Safety Report 6519889-5 (Version None)
Quarter: 2009Q4

REPORT INFORMATION
  Report Type: 
  Country: None (occurrence: None)
  Receive Date: 20091229
  Receipt Date: 20091223
  Transmission Date: 20100525
  Serious: Yes (Hospitalization, Other)
  Sender: FDA-Public Use
  Company Number: US-ASTRAZENECA-2007UW05054

PATIENT
  Age: 707 Month
  Sex: Female
  Weight: 99.3 kg

DRUGS (7)
  1. SEROQUEL [Suspect]
     Indication: SCHIZOPHRENIA
     Dosage: 400-500 MG
     Route: 048
     Dates: start: 20060701, end: 20070501
  2. SEROQUEL [Suspect]
     Dosage: 25MG-500MG
     Route: 048
     Dates: start: 20060614, end: 20070501
  3. ABILIFY [Concomitant]
     Dosage: 5-15 MG
     Dates: start: 20070530
  4. RISPERDAL [Concomitant]
     Dosage: 2-3 MG
     Dates: start: 20030101, end: 20060501
  5. STELAZINE [Concomitant]
     Dosage: 2 MG BID, THEN DECREASE TO 2 MG QOD
     Dates: start: 20020801, end: 20030601
  6. ZOLOFT [Concomitant]
     Dosage: 100MG-200MG AT NIGHT
     Dates: start: 19880101
  7. HALDOL [Concomitant]
     Dosage: EARLY 1990, 1991

REACTIONS (6)
  - BLISTER [None]
  - DYSPNOEA [None]
  - MYOCARDIAL INFARCTION [None]
  - PNEUMONIA [None]
  - PULMONARY EMBOLISM [None]
  - TYPE 2 DIABETES MELLITUS [None]
